FAERS Safety Report 9904267 (Version 2)
Quarter: 2014Q1

REPORT INFORMATION
  Report Type: Spontaneous
  Country: US (occurrence: US)
  Receive Date: 20140218
  Receipt Date: 20140314
  Transmission Date: 20141002
  Serious: Yes (Other)
  Sender: FDA-Public Use
  Company Number: US-AMGEN-USASP2014010498

PATIENT
  Age: 82 Year
  Sex: Female
  Weight: 60.32 kg

DRUGS (1)
  1. PROLIA [Suspect]
     Indication: OSTEOPOROSIS
     Dosage: UNK
     Route: 065
     Dates: start: 20130715

REACTIONS (2)
  - Tooth infection [Recovered/Resolved]
  - Tooth abscess [Unknown]
